FAERS Safety Report 4523744-X (Version None)
Quarter: 2004Q4

REPORT INFORMATION
  Report Type: 
  Country: None (occurrence: None)
  Receive Date: 20041210
  Receipt Date: 20041210
  Transmission Date: 20050328
  Serious: Yes (Hospitalization)
  Sender: FDA-Public Use
  Company Number: None

PATIENT
  Sex: Male
  Weight: 63.5036 kg

DRUGS (7)
  1. WARFARIN SODIUM [Suspect]
     Indication: CEREBROVASCULAR ACCIDENT
     Dosage: 5 MG DAILY PO
     Route: 048
     Dates: start: 20041008, end: 20041019
  2. ASPIRIN [Concomitant]
  3. FLAGYL [Concomitant]
  4. ISONIAZID [Concomitant]
  5. PYRIDOXINE HCL [Concomitant]
  6. IRON [Concomitant]
  7. DOCUSATE/SENNA [Concomitant]

REACTIONS (13)
  - ABDOMINAL DISTENSION [None]
  - CLOSTRIDIUM COLITIS [None]
  - DECREASED APPETITE [None]
  - DRUG INTERACTION [None]
  - EPISTAXIS [None]
  - FAECES DISCOLOURED [None]
  - GINGIVAL BLEEDING [None]
  - HAEMORRHAGE [None]
  - INTERNATIONAL NORMALISED RATIO INCREASED [None]
  - SKIN ULCER [None]
  - SPINAL DISORDER [None]
  - STOOLS WATERY [None]
  - ULCER [None]
